FAERS Safety Report 5483275-X (Version None)
Quarter: 2007Q4

REPORT INFORMATION
  Report Type: 
  Country: None (occurrence: None)
  Receive Date: 20071012
  Receipt Date: 20071001
  Transmission Date: 20080405
  Serious: Yes (Other)
  Sender: FDA-Public Use
  Company Number: PHEH2007US13137

PATIENT
  Sex: Male

DRUGS (1)
  1. EXELON PATCH [Suspect]
     Dosage: 4.6 MG, UNK
     Route: 062

REACTIONS (5)
  - ABASIA [None]
  - APHASIA [None]
  - INFREQUENT BOWEL MOVEMENTS [None]
  - MOVEMENT DISORDER [None]
  - SOMNOLENCE [None]
